FAERS Safety Report 20136365 (Version 1)
Quarter: 2021Q4

REPORT INFORMATION
  Report Type: Spontaneous
  Country: US (occurrence: US)
  Receive Date: 20211201
  Receipt Date: 20211201
  Transmission Date: 20220303
  Serious: Yes (Hospitalization, Other)
  Sender: FDA-Public Use
  Company Number: US-PFIZER INC-202101604988

PATIENT
  Age: 59 Year
  Sex: Female
  Weight: 97.98 kg

DRUGS (1)
  1. CHANTIX [Suspect]
     Active Substance: VARENICLINE TARTRATE
     Indication: Smoking cessation therapy
     Dosage: UNK
     Dates: start: 2009

REACTIONS (9)
  - Leukaemia [Not Recovered/Not Resolved]
  - Neoplasm malignant [Unknown]
  - White blood cell count decreased [Unknown]
  - Red blood cell count decreased [Unknown]
  - Illness [Unknown]
  - Asthenia [Unknown]
  - Dyspnoea [Unknown]
  - Pleural effusion [Unknown]
  - Recalled product administered [Unknown]

NARRATIVE: CASE EVENT DATE: 20200601
